FAERS Safety Report 5982150-1 (Version None)
Quarter: 2008Q4

REPORT INFORMATION
  Report Type: 
  Country: None (occurrence: None)
  Receive Date: 20081203
  Receipt Date: 20081121
  Transmission Date: 20090506
  Serious: Yes (Hospitalization)
  Sender: FDA-Public Use
  Company Number: 2008AL011940

PATIENT
  Age: 48 Year
  Sex: Female

DRUGS (4)
  1. ALPRAZOLAM [Suspect]
     Indication: ANXIETY
     Dosage: 1 MG; TID; PO
     Route: 048
     Dates: start: 19980101
  2. FENTANYL-100 [Concomitant]
  3. PERCOCET [Concomitant]
  4. DICYCLOMINE [Concomitant]

REACTIONS (5)
  - AGGRESSION [None]
  - AMNESIA [None]
  - FALL [None]
  - OVERDOSE [None]
  - SUICIDE ATTEMPT [None]
